FAERS Safety Report 24898495 (Version 1)
Quarter: 2025Q1

REPORT INFORMATION
  Report Type: Report from Study
  Country: US (occurrence: US)
  Receive Date: 20250129
  Receipt Date: 20250129
  Transmission Date: 20250408
  Serious: Yes (Hospitalization)
  Sender: TAKEDA
  Company Number: US-TAKEDA-2024TUS118797

PATIENT
  Sex: Female

DRUGS (1)
  1. LANADELUMAB [Suspect]
     Active Substance: LANADELUMAB
     Indication: Hereditary angioedema
     Dosage: 300 MILLIGRAM, Q2WEEKS
     Dates: start: 20230515

REACTIONS (4)
  - Ulcer haemorrhage [Recovered/Resolved]
  - Stress [Recovered/Resolved]
  - Herpes zoster [Recovered/Resolved]
  - Hereditary angioedema [Recovered/Resolved]
